FAERS Safety Report 5355572-X (Version None)
Quarter: 2007Q2

REPORT INFORMATION
  Report Type: 
  Country: None (occurrence: None)
  Receive Date: 20070612
  Receipt Date: 20070612
  Transmission Date: 20071010
  Serious: No
  Sender: FDA-Public Use
  Company Number: None

PATIENT

DRUGS (2)
  1. VASERETIC [Suspect]
  2. ENALAPRILAT [Suspect]
     Dosage: INJECTABLE

REACTIONS (5)
  - ADVERSE DRUG REACTION [None]
  - ANGIOEDEMA [None]
  - DRUG PRESCRIBING ERROR [None]
  - MEDICATION ERROR [None]
  - MYOPATHY [None]
